FAERS Safety Report 5946978-6 (Version None)
Quarter: 2008Q4

REPORT INFORMATION
  Report Type: 
  Country: None (occurrence: None)
  Receive Date: 20081107
  Receipt Date: 20081107
  Transmission Date: 20090506
  Serious: Yes (Other)
  Sender: FDA-Public Use
  Company Number: None

PATIENT
  Age: 59 Year
  Sex: Male
  Weight: 88.4514 kg

DRUGS (1)
  1. BUDEPRION XL 300 MG TEVA [Suspect]
     Indication: ANXIETY
     Dosage: 1 300 MG 1 PER DAY PO
     Route: 048
     Dates: start: 20070901, end: 20070921

REACTIONS (4)
  - CONDITION AGGRAVATED [None]
  - ECONOMIC PROBLEM [None]
  - FEELING ABNORMAL [None]
  - THERAPEUTIC RESPONSE UNEXPECTED WITH DRUG SUBSTITUTION [None]
